FAERS Safety Report 7829347-3 (Version None)
Quarter: 2011Q4

REPORT INFORMATION
  Report Type: 
  Country: None (occurrence: None)
  Receive Date: 20111020
  Receipt Date: 20111004
  Transmission Date: 20120403
  Serious: No
  Sender: FDA-Public Use
  Company Number: US-B.I. PHARMACEUTICALS,INC./RIDGEFIELD-2006-BP-03855PF

PATIENT
  Sex: Male

DRUGS (38)
  1. MIRAPEX [Suspect]
     Indication: PARKINSON'S DISEASE
     Route: 048
     Dates: start: 19971201, end: 20051101
  2. FOLIC ACID [Concomitant]
     Dates: start: 20010101
  3. PREVACID [Concomitant]
     Indication: GASTROOESOPHAGEAL REFLUX DISEASE
     Dates: start: 20030101
  4. NEXIUM [Concomitant]
     Indication: GASTROOESOPHAGEAL REFLUX DISEASE
     Dosage: 40 MG
     Dates: start: 20020611
  5. HIGH BP PILL [Concomitant]
  6. AMANTADINE HCL [Concomitant]
     Indication: PARKINSON'S DISEASE
     Dosage: 200 MG
     Dates: start: 19960514
  7. OCUPRESS [Concomitant]
     Indication: GLAUCOMA
     Route: 031
     Dates: start: 19971216
  8. SELEGILINE [Concomitant]
     Indication: PARKINSON'S DISEASE
     Dosage: 10 MG
     Dates: start: 20000717
  9. SINEMET [Concomitant]
     Indication: PARKINSON'S DISEASE
     Dates: start: 20000801, end: 20010601
  10. ASPIRIN [Concomitant]
     Dates: start: 20010101
  11. LIPITOR [Concomitant]
     Indication: DYSLIPIDAEMIA
     Dosage: 20 MG
     Dates: start: 20040611, end: 20050101
  12. CARBIDOPA/LEVODOPA CR [Concomitant]
     Indication: PARKINSON'S DISEASE
     Dates: start: 20051111
  13. ASPIRIN [Concomitant]
  14. VITAMIN E [Concomitant]
     Dates: start: 20010101
  15. SINEMET CR [Concomitant]
     Indication: PARKINSON'S DISEASE
     Dates: start: 20010701
  16. CARBIDOPA AND LEVODOPA [Concomitant]
     Indication: PARKINSON'S DISEASE
     Dates: start: 20051111
  17. CLONAZEPAM [Concomitant]
     Dosage: 1 MG
  18. XALATAN [Concomitant]
  19. SINEMET [Concomitant]
     Dates: start: 20060317
  20. COENZYME Q10 [Concomitant]
  21. ASPIRIN [Concomitant]
     Dates: start: 20051111
  22. TRIAMTERENE W/ HYDROCHLOROTHIAZIDE [Concomitant]
  23. FISH OIL [Concomitant]
  24. COMTAN [Concomitant]
     Dosage: 200 MG
  25. ELDEPRYL [Concomitant]
     Dosage: 5 MG
     Dates: start: 19990101
  26. ZANTAC [Concomitant]
     Indication: GASTROOESOPHAGEAL REFLUX DISEASE
     Dosage: 300 MG
     Dates: start: 20020111
  27. MAXZIDE [Concomitant]
     Indication: HYPERTENSION
     Dates: start: 20030111, end: 20050101
  28. CARBIDOPA + LEVODOPA [Concomitant]
     Indication: PARKINSON'S DISEASE
  29. TIMOLOL GEL [Concomitant]
     Indication: CATARACT
     Dates: start: 20050101
  30. STALEVO 100 [Concomitant]
  31. SLEEPING PILLS [Concomitant]
  32. ELDEPRYL [Concomitant]
     Indication: PARKINSON'S DISEASE
     Dosage: 10 MG
     Dates: start: 19960514
  33. ELDEPRYL [Concomitant]
     Dosage: 10 MG
     Dates: start: 19990201, end: 20000101
  34. AMANTADINE HCL [Concomitant]
     Dosage: 100 MG
     Dates: start: 20051111
  35. ARTANE [Concomitant]
     Indication: PARKINSON'S DISEASE
     Dosage: 4 MG
     Dates: start: 19990101, end: 20000101
  36. TYLENOL-500 [Concomitant]
     Dates: start: 20010101
  37. MULTI-VITAMINS [Concomitant]
     Dates: start: 20020101
  38. KLONOPIN [Concomitant]

REACTIONS (3)
  - PATHOLOGICAL GAMBLING [None]
  - EMOTIONAL DISTRESS [None]
  - DEPRESSION [None]
